FAERS Safety Report 25602912 (Version 1)
Quarter: 2025Q3

REPORT INFORMATION
  Report Type: Spontaneous
  Country: EG (occurrence: EG)
  Receive Date: 20250724
  Receipt Date: 20250724
  Transmission Date: 20251020
  Serious: Yes (Other)
  Sender: ELI LILLY AND COMPANY
  Company Number: EG-ELI_LILLY_AND_COMPANY-EG202507006583

PATIENT
  Age: 51 Year
  Sex: Male

DRUGS (12)
  1. MOUNJARO [Suspect]
     Active Substance: TIRZEPATIDE
     Indication: Weight control
     Dosage: 2.5 MG, WEEKLY (1/W)
     Route: 058
     Dates: start: 20250305
  2. MOUNJARO [Suspect]
     Active Substance: TIRZEPATIDE
     Indication: Type 2 diabetes mellitus
  3. MOUNJARO [Suspect]
     Active Substance: TIRZEPATIDE
     Indication: Weight control
     Dosage: 5 MG, WEEKLY (1/W)
     Route: 058
  4. MOUNJARO [Suspect]
     Active Substance: TIRZEPATIDE
     Indication: Type 2 diabetes mellitus
  5. PANTOPRAZOLE SODIUM [Concomitant]
     Active Substance: PANTOPRAZOLE SODIUM
     Indication: Product used for unknown indication
     Dosage: 40 MG, DAILY
  6. ERASTAPEX PLUS [Concomitant]
     Indication: Hypertension
     Dosage: 20 MG, DAILY
  7. ERASTAPEX PLUS [Concomitant]
     Dosage: 12.5 MG, DAILY
  8. ASPIRIN [Concomitant]
     Active Substance: ASPIRIN
     Indication: Product used for unknown indication
     Dosage: 100 MG, DAILY
  9. ACHTENON [Concomitant]
     Indication: Product used for unknown indication
  10. STELLASIL [Concomitant]
     Indication: Antipsychotic therapy
     Dosage: 5 MG, BID
  11. CLOZAPEX [Concomitant]
     Indication: Antipsychotic therapy
  12. MONTELUKAST SODIUM [Concomitant]
     Active Substance: MONTELUKAST SODIUM
     Indication: Bronchospasm
     Dosage: 10 MG, DAILY

REACTIONS (12)
  - Self-injurious ideation [Recovered/Resolved]
  - Balance disorder [Recovered/Resolved]
  - Emotional distress [Recovered/Resolved]
  - Depressive symptom [Recovered/Resolved]
  - Hypersomnia [Recovered/Resolved]
  - Tremor [Recovered/Resolved]
  - Nerve compression [Not Recovered/Not Resolved]
  - Dizziness [Recovered/Resolved]
  - Hypoglycaemia [Recovered/Resolved]
  - Nausea [Recovered/Resolved]
  - Constipation [Recovered/Resolved]
  - Drug ineffective [Not Recovered/Not Resolved]

NARRATIVE: CASE EVENT DATE: 20250301
